FAERS Safety Report 4971350-5 (Version None)
Quarter: 2006Q2

REPORT INFORMATION
  Report Type: 
  Country: None (occurrence: None)
  Receive Date: 20060413
  Receipt Date: 20060321
  Transmission Date: 20061013
  Serious: Yes (Other)
  Sender: FDA-Public Use
  Company Number: 2006UW05289

PATIENT
  Age: 61 Year
  Sex: Female

DRUGS (5)
  1. ROSUVASTATIN [Suspect]
     Indication: DYSLIPIDAEMIA
     Route: 048
     Dates: end: 20060321
  2. ROSUVASTATIN [Suspect]
     Indication: HYPERCHOLESTEROLAEMIA
     Route: 048
     Dates: end: 20060321
  3. ATENOLOL [Concomitant]
  4. OMEPRAZOLE [Concomitant]
  5. AAS [Concomitant]

REACTIONS (7)
  - ARTHRALGIA [None]
  - C-REACTIVE PROTEIN INCREASED [None]
  - DYSPNOEA [None]
  - MYALGIA [None]
  - OEDEMA [None]
  - RED BLOOD CELL SEDIMENTATION RATE [None]
  - TACHYCARDIA [None]
